FAERS Safety Report 7753419-5 (Version None)
Quarter: 2011Q3

REPORT INFORMATION
  Report Type: 
  Country: None (occurrence: None)
  Receive Date: 20110915
  Receipt Date: 20110906
  Transmission Date: 20111222
  Serious: Yes (Other)
  Sender: FDA-Public Use
  Company Number: US-ASTRAZENECA-2011SE53294

PATIENT
  Sex: Female

DRUGS (1)
  1. SEROQUEL XR [Suspect]
     Dosage: 200 MG IN THE MORNING AND 400 MG AT NIGHT
     Route: 048

REACTIONS (3)
  - HEPATIC FAILURE [None]
  - RENAL FAILURE [None]
  - WHITE BLOOD CELL COUNT ABNORMAL [None]
